FAERS Safety Report 9333161 (Version 1)
Quarter: 2013Q2

REPORT INFORMATION
  Report Type: Spontaneous
  Country: FR (occurrence: FR)
  Receive Date: 20130606
  Receipt Date: 20130606
  Transmission Date: 20140414
  Serious: Yes (Hospitalization)
  Sender: FDA-Public Use
  Company Number: FR-SANOFI-AVENTIS-2013SA054593

PATIENT
  Age: 85 Year
  Sex: Male

DRUGS (14)
  1. PLAVIX [Suspect]
     Indication: ISCHAEMIC CARDIOMYOPATHY
     Route: 048
     Dates: start: 1992
  2. PREVISCAN [Interacting]
     Indication: ARRHYTHMIA
     Route: 048
     Dates: start: 201304, end: 201304
  3. CALCIPARINE [Concomitant]
     Indication: ARRHYTHMIA
     Route: 058
  4. AMLODIPINE [Concomitant]
     Route: 048
  5. LASILIX [Concomitant]
     Route: 048
  6. HYPERIUM [Concomitant]
     Route: 048
  7. TEMERIT [Concomitant]
     Route: 048
  8. TRIATEC [Concomitant]
     Route: 048
  9. EUPRESSYL [Concomitant]
     Route: 048
  10. POLYSTYRENE SULFONATE CALCIUM [Concomitant]
  11. NOVONORM [Concomitant]
  12. TARDYFERON [Concomitant]
  13. ARANESP [Concomitant]
  14. INEXIUM [Concomitant]

REACTIONS (3)
  - Prothrombin time shortened [Recovering/Resolving]
  - Drug interaction [Unknown]
  - Anaemia [Recovering/Resolving]
